FAERS Safety Report 15465066 (Version 1)
Quarter: 2018Q4

REPORT INFORMATION
  Report Type: Spontaneous
  Country: CN (occurrence: CN)
  Receive Date: 20181004
  Receipt Date: 20181004
  Transmission Date: 20190204
  Serious: Yes (Other)
  Sender: FDA-Public Use
  Company Number: CN-BAYER-2018-182120

PATIENT
  Age: 68 Year
  Sex: Male

DRUGS (20)
  1. OMEPRAZOLE SODIUM [Concomitant]
     Active Substance: OMEPRAZOLE SODIUM
  2. CODEINE [Concomitant]
     Active Substance: CODEINE
  3. DOCETAXEL. [Concomitant]
     Active Substance: DOCETAXEL
  4. COENZYME Q10 [Concomitant]
     Active Substance: UBIDECARENONE
  5. CEFTRIAXONE SODIUM. [Concomitant]
     Active Substance: CEFTRIAXONE SODIUM
  6. LIQUORICE [Concomitant]
     Active Substance: LICORICE
  7. MEGESTROL ACETATE. [Concomitant]
     Active Substance: MEGESTROL ACETATE
  8. CIMETIDINE [Concomitant]
     Active Substance: CIMETIDINE
  9. PIPERACILLIN AND TAZOBACTAM [Concomitant]
     Active Substance: PIPERACILLIN SODIUM\TAZOBACTAM SODIUM
  10. GLUCOBAY [Suspect]
     Active Substance: ACARBOSE
     Indication: BLOOD GLUCOSE INCREASED
     Dosage: 1 DF, TID
     Route: 048
     Dates: start: 20180807, end: 20180817
  11. IBUPROFEN. [Concomitant]
     Active Substance: IBUPROFEN
  12. GLUTATHIONE [Concomitant]
     Active Substance: GLUTATHIONE
  13. INVERTOSE [Concomitant]
  14. LEVOFLOXACIN. [Concomitant]
     Active Substance: LEVOFLOXACIN
  15. AMMONIUM CHLORIDE. [Concomitant]
     Active Substance: AMMONIUM CHLORIDE
  16. REPAGLINIDE. [Suspect]
     Active Substance: REPAGLINIDE
     Indication: BLOOD GLUCOSE INCREASED
     Dosage: 1 DF, QD
     Route: 048
     Dates: start: 20180807, end: 20180826
  17. LEVOFLOXACIN. [Concomitant]
     Active Substance: LEVOFLOXACIN
  18. DILTIAZEM HYDROCHLORIDE. [Concomitant]
     Active Substance: DILTIAZEM HYDROCHLORIDE
  19. ETAMSYLATE [Concomitant]
     Active Substance: ETHAMSYLATE
  20. CILASTATIN SODIUM W/IMIPENEM [Concomitant]
     Active Substance: CILASTATIN SODIUM\IMIPENEM

REACTIONS (1)
  - Blood glucose decreased [Recovering/Resolving]

NARRATIVE: CASE EVENT DATE: 20180815
